FAERS Safety Report 9801759 (Version 2)
Quarter: 2014Q1

REPORT INFORMATION
  Report Type: Report from Study
  Country: JP (occurrence: JP)
  Receive Date: 20140107
  Receipt Date: 20140115
  Transmission Date: 20141002
  Serious: Yes (Hospitalization, Other)
  Sender: FDA-Public Use
  Company Number: JP-PFIZER INC-2014003589

PATIENT
  Age: 80 Year
  Sex: Male
  Weight: 65.9 kg

DRUGS (12)
  1. UNASYN-S [Suspect]
     Indication: PNEUMONIA
     Dosage: 3 G, 2X/DAY
     Route: 041
     Dates: start: 20131007, end: 20131007
  2. UNASYN-S [Suspect]
     Dosage: 3 G, 3X/DAY
     Route: 041
     Dates: start: 20131008, end: 20131009
  3. UNASYN-S [Suspect]
     Dosage: 3 G, 1X/DAY
     Route: 041
     Dates: start: 20131010, end: 20131010
  4. AMLODIN [Concomitant]
     Dosage: 2.5 MG, UNK
     Route: 048
  5. DIOVAN [Concomitant]
     Dosage: 80 MG, UNK
     Route: 048
  6. FUROSEMID [Concomitant]
     Dosage: 10 MG, UNK
     Route: 048
  7. FEBURIC [Concomitant]
     Dosage: 10 MG, UNK
     Route: 048
  8. TAKEPRON [Concomitant]
     Dosage: 15 MG, UNK
     Route: 048
  9. LOXONIN [Concomitant]
     Dosage: 60 MG, UNK
     Route: 048
     Dates: start: 20131007
  10. SLOW-K [Concomitant]
     Dosage: 60 MG, UNK
     Route: 048
     Dates: start: 20131010
  11. SOLDEM 3AG [Concomitant]
     Dosage: UNK
     Dates: start: 20131008
  12. OXYGEN [Concomitant]
     Dosage: UNK
     Dates: start: 20131007

REACTIONS (2)
  - Drug ineffective [Unknown]
  - White blood cell count increased [Recovered/Resolved]
